FAERS Safety Report 18311876 (Version 1)
Quarter: 2020Q3

REPORT INFORMATION
  Report Type: Spontaneous
  Country: US (occurrence: US)
  Receive Date: 20200925
  Receipt Date: 20200925
  Transmission Date: 20201103
  Serious: No
  Sender: FDA-Public Use
  Company Number: US-MACLEODS PHARMACEUTICALS US LTD-MAC2020028133

PATIENT

DRUGS (4)
  1. PRAMIPEXOLE 0.75 MG EXTENDED RELEASE TABLET [Suspect]
     Active Substance: PRAMIPEXOLE DIHYDROCHLORIDE
     Dosage: DOSE INCRESED BY PHYSICIAN, NORTHSTAR (PRAMIPEXOLE)
     Route: 048
     Dates: start: 202008
  2. GABAPENTIN. [Suspect]
     Active Substance: GABAPENTIN
     Indication: RESTLESS LEGS SYNDROME
     Dosage: AS NEEDED, WITHOUT THE GUIDANCE OF PHYSICIAN, GABAPENTIN CAPSULES CV
     Route: 048
     Dates: start: 202009
  3. PRAMIPEXOLE 0.75 MG EXTENDED RELEASE TABLET [Suspect]
     Active Substance: PRAMIPEXOLE DIHYDROCHLORIDE
     Indication: RESTLESS LEGS SYNDROME
     Dosage: FOR MANY YEARS, NORTHSTAR (PRAMIPEXOLE)
     Route: 048
  4. PRAMIPEXOLE 0.75 MG EXTENDED RELEASE TABLET [Suspect]
     Active Substance: PRAMIPEXOLE DIHYDROCHLORIDE
     Dosage: INCREASED THE DOSE ON HER OWN, NORTHSTAR (PRAMIPEXOLE)
     Route: 048
     Dates: start: 202008

REACTIONS (3)
  - Self-medication [Unknown]
  - Medication error [Unknown]
  - Drug ineffective [Unknown]

NARRATIVE: CASE EVENT DATE: 202008
